FAERS Safety Report 14529821 (Version 1)
Quarter: 2018Q1

REPORT INFORMATION
  Report Type: Spontaneous
  Country: GB (occurrence: FR)
  Receive Date: 20180214
  Receipt Date: 20180214
  Transmission Date: 20180509
  Serious: Yes (Life-Threatening)
  Sender: FDA-Public Use
  Company Number: FR-FRESENIUS KABI-FK201801443

PATIENT
  Age: 63 Year
  Sex: Male
  Weight: 82 kg

DRUGS (11)
  1. KETAMINE PANPHARMA [Suspect]
     Active Substance: KETAMINE
     Indication: PERIOPERATIVE ANALGESIA
  2. CHLORHEXIDINE CHLORHYDRATE [Suspect]
     Active Substance: CHLORHEXIDINE HYDROCHLORIDE
     Indication: INFECTION PROPHYLAXIS
     Route: 003
     Dates: start: 20171123, end: 20171123
  3. ROPIVACAINE (MANUFACTURER UNKNOWN) [Suspect]
     Active Substance: ROPIVACAINE
     Indication: ANAESTHESIA
     Route: 051
     Dates: start: 20171123, end: 20171123
  4. DEXAMETHASONE MYLAN [Suspect]
     Active Substance: DEXAMETHASONE
     Indication: SURGERY
     Route: 051
     Dates: start: 20171123, end: 20171123
  5. PROFENID [Suspect]
     Active Substance: KETOPROFEN
     Indication: PERIOPERATIVE ANALGESIA
     Route: 042
     Dates: start: 20171123, end: 20171123
  6. BETADINE [Suspect]
     Active Substance: POVIDONE-IODINE
     Indication: INFECTION PROPHYLAXIS
     Route: 003
     Dates: start: 20171123, end: 20171123
  7. SUFENTA [Suspect]
     Active Substance: SUFENTANIL CITRATE
     Indication: ANAESTHESIA
     Route: 051
     Dates: start: 20171123, end: 20171123
  8. PROPOFOL FRESENIUS (NOT SPECIFIED) [Suspect]
     Active Substance: PROPOFOL
     Indication: ANAESTHESIA
     Route: 051
     Dates: start: 20171123, end: 20171123
  9. PARACETAMOL (MANUFACTURER UNKNOWN) [Suspect]
     Active Substance: ACETAMINOPHEN
     Indication: PAIN
     Route: 065
     Dates: start: 20171123, end: 20171123
  10. KETAMINE PANPHARMA [Suspect]
     Active Substance: KETAMINE
     Indication: PERIOPERATIVE ANALGESIA
     Route: 042
     Dates: start: 20171123, end: 20171123
  11. CEFAZOLINE PANPHARMA [Suspect]
     Active Substance: CEFAZOLIN SODIUM
     Indication: INFECTION PROPHYLAXIS
     Route: 051
     Dates: start: 20171123, end: 20171123

REACTIONS (1)
  - Anaphylactic reaction [Recovered/Resolved]

NARRATIVE: CASE EVENT DATE: 20171123
